FAERS Safety Report 5219134-7 (Version None)
Quarter: 2007Q1

REPORT INFORMATION
  Report Type: 
  Country: None (occurrence: None)
  Receive Date: 20070124
  Receipt Date: 20070124
  Transmission Date: 20070707
  Serious: Yes (Other)
  Sender: FDA-Public Use
  Company Number: None

PATIENT
  Age: 75 Year
  Sex: Male
  Weight: 94.8018 kg

DRUGS (9)
  1. TRAVATAN [Suspect]
     Indication: GLAUCOMA
     Dosage: ONE GTT EACH EYE HS
     Dates: start: 20051101, end: 20061001
  2. MOMETASONE FUROATE [Concomitant]
  3. ZAFIRLUKAST [Concomitant]
  4. LORATADINE [Concomitant]
  5. FLUTICASONE PROPIONATE [Concomitant]
  6. FORMOTEROL FUMARATE [Concomitant]
  7. TRAVOPROST [Concomitant]
  8. DILTIAZEM HCL [Concomitant]
  9. TRIAMTERENE AND HYDROCHLOROTHIAZIDE [Concomitant]

REACTIONS (6)
  - CONJUNCTIVAL HYPERAEMIA [None]
  - EYE PAIN [None]
  - EYE PRURITUS [None]
  - LACRIMATION INCREASED [None]
  - PERIORBITAL DISORDER [None]
  - PIGMENTATION DISORDER [None]
